FAERS Safety Report 6421582-4 (Version None)
Quarter: 2009Q4

REPORT INFORMATION
  Report Type: 
  Country: None (occurrence: None)
  Receive Date: 20091030
  Receipt Date: 20091021
  Transmission Date: 20100525
  Serious: Yes (Hospitalization, Other)
  Sender: FDA-Public Use
  Company Number: JP-JNJFOC-20090806877

PATIENT
  Sex: Female
  Weight: 58 kg

DRUGS (4)
  1. RISPERDAL [Suspect]
     Route: 048
  2. RISPERDAL [Suspect]
     Indication: SCHIZOPHRENIA
     Route: 048
  3. DORAL [Suspect]
     Indication: SCHIZOPHRENIA
     Route: 048
  4. RISPERDAL CONSTA [Concomitant]
     Indication: SCHIZOPHRENIA
     Route: 030

REACTIONS (4)
  - DRUG INEFFECTIVE [None]
  - NEUROLEPTIC MALIGNANT SYNDROME [None]
  - PYREXIA [None]
  - TREATMENT NONCOMPLIANCE [None]
